FAERS Safety Report 21757612 (Version 1)
Quarter: 2022Q4

REPORT INFORMATION
  Report Type: Spontaneous
  Country: US (occurrence: US)
  Receive Date: 20221221
  Receipt Date: 20221221
  Transmission Date: 20230113
  Serious: No
  Sender: FDA-Public Use
  Company Number: US-ABBVIE-4244371

PATIENT
  Sex: Male

DRUGS (1)
  1. LUPRON DEPOT [Suspect]
     Active Substance: LEUPROLIDE ACETATE
     Indication: Prostate cancer
     Dosage: DEPOT
     Route: 065
     Dates: start: 2022

REACTIONS (3)
  - Wound [Unknown]
  - Injection site erosion [Unknown]
  - Injection site discharge [Unknown]

NARRATIVE: CASE EVENT DATE: 20220101
